FAERS Safety Report 5775317-9 (Version None)
Quarter: 2008Q2

REPORT INFORMATION
  Report Type: 
  Country: None (occurrence: None)
  Receive Date: 20080616
  Receipt Date: 20080616
  Transmission Date: 20081010
  Serious: No
  Sender: FDA-Public Use
  Company Number: None

PATIENT
  Sex: Male
  Weight: 107.9561 kg

DRUGS (1)
  1. TEKTURNA [Suspect]
     Indication: HYPERTENSION
     Dosage: 1 TABLET EVERY DAY PO
     Route: 048
     Dates: start: 20080121, end: 20080608

REACTIONS (2)
  - BACK PAIN [None]
  - PHARMACEUTICAL PRODUCT COMPLAINT [None]
